FAERS Safety Report 8355376-X (Version None)
Quarter: 2012Q2

REPORT INFORMATION
  Report Type: 
  Country: None (occurrence: None)
  Receive Date: 20120511
  Receipt Date: 20120502
  Transmission Date: 20120825
  Serious: Yes (Death, Hospitalization)
  Sender: FDA-Public Use
  Company Number: DE-ROCHE-1063338

PATIENT
  Sex: Female

DRUGS (9)
  1. MARCUMAR [Concomitant]
     Dates: start: 20100401
  2. POTASSIUM CHLORIDE [Concomitant]
     Route: 048
  3. ACTEMRA [Suspect]
     Indication: POLYARTHRITIS
     Dates: start: 20110501, end: 20110819
  4. GLIMEPIRIDA [Concomitant]
     Route: 048
  5. METFORMIN HCL [Concomitant]
     Route: 048
  6. LEFLUNOMIDE [Concomitant]
     Indication: POLYARTHRITIS
     Dates: start: 20040201
  7. METOPROLOL TARTRATE [Concomitant]
     Route: 048
  8. ALISKIREN [Concomitant]
     Route: 048
  9. TOLTERODINE TARTRATE [Concomitant]
     Route: 048

REACTIONS (3)
  - DIABETIC FOOT [None]
  - CEREBRAL INFARCTION [None]
  - CARDIAC FAILURE [None]
